FAERS Safety Report 18884554 (Version 1)
Quarter: 2021Q1

REPORT INFORMATION
  Report Type: Other
  Country: GB (occurrence: GB)
  Receive Date: 20210211
  Receipt Date: 20210211
  Transmission Date: 20210420
  Serious: Yes (Death, Other)
  Sender: FDA-Public Use
  Company Number: GB-MACLEODS PHARMA UK LTD-MAC2021030102

PATIENT

DRUGS (2)
  1. EMTRICITABINE + TENOFOVIR [Suspect]
     Active Substance: EMTRICITABINE\TENOFOVIR
     Dosage: 1 DOSAGE FORM, QD,200/245 MILLIGRAM
     Route: 065
  2. TIVICAY [Suspect]
     Active Substance: DOLUTEGRAVIR SODIUM
     Indication: PRODUCT USED FOR UNKNOWN INDICATION
     Dosage: 1 DOSAGE FORM, QD (50MG)
     Route: 065

REACTIONS (1)
  - Death [Fatal]

NARRATIVE: CASE EVENT DATE: 202101
